FAERS Safety Report 10137502 (Version 2)
Quarter: 2014Q2

REPORT INFORMATION
  Report Type: Spontaneous
  Country: US (occurrence: US)
  Receive Date: 20140429
  Receipt Date: 20140429
  Transmission Date: 20141212
  Serious: Yes (Other)
  Sender: FDA-Public Use
  Company Number: US-PFIZER INC-2014110041

PATIENT
  Age: 71 Year
  Sex: Male

DRUGS (7)
  1. PHENYTOIN [Suspect]
     Indication: CONVULSION
     Dosage: UNK
     Dates: end: 20131001
  2. TICAGRELOR [Interacting]
     Indication: ANTIPLATELET THERAPY
     Dosage: 180 MG, UNK
     Dates: start: 20130930, end: 20130930
  3. TICAGRELOR [Interacting]
     Dosage: 90 MG, 2X/DAY
     Dates: start: 20131001
  4. ASPIRIN [Concomitant]
     Indication: ANTIPLATELET THERAPY
     Dosage: 81 MG, DAILY
     Dates: start: 2013
  5. HEPARIN [Concomitant]
     Dosage: 11 500 UNITS
     Route: 042
     Dates: start: 2013, end: 2013
  6. EPTIFIBATIDE [Concomitant]
     Dosage: 180 UG/KG, SINGLE
     Route: 042
     Dates: start: 2013, end: 2013
  7. EPTIFIBATIDE [Concomitant]
     Dosage: 2 UG/KG/MIN
     Route: 042
     Dates: start: 2013, end: 2013

REACTIONS (2)
  - Drug interaction [Recovered/Resolved]
  - Platelet aggregation abnormal [Recovered/Resolved]
